FAERS Safety Report 4822110-7 (Version None)
Quarter: 2005Q4

REPORT INFORMATION
  Report Type: 
  Country: None (occurrence: None)
  Receive Date: 20051103
  Receipt Date: 20051019
  Transmission Date: 20060501
  Serious: Yes (Life-Threatening, Hospitalization)
  Sender: FDA-Public Use
  Company Number: JP_050907628

PATIENT
  Age: 38 Year
  Sex: Male
  Weight: 72 kg

DRUGS (11)
  1. ZYPREXA [Suspect]
     Indication: MENTAL DISORDER
     Dosage: 20 MG DAY
     Dates: start: 20040110
  2. LORAZEPAM [Concomitant]
  3. RISPERDAL [Concomitant]
  4. DIAZEPAM [Concomitant]
  5. TEGRETOL [Concomitant]
  6. LOXONIN (LOXOPROFEN SODIUM) [Concomitant]
  7. MUCOSTA (REBAMIPIDE) [Concomitant]
  8. HALOPERIDOL [Concomitant]
  9. NITRAZEPAM [Concomitant]
  10. AMOBAN (ZOPICLONE) [Concomitant]
  11. AKINETON [Concomitant]

REACTIONS (3)
  - GENERALISED OEDEMA [None]
  - RENAL FAILURE ACUTE [None]
  - RHABDOMYOLYSIS [None]
